FAERS Safety Report 7983794-8 (Version None)
Quarter: 2011Q4

REPORT INFORMATION
  Report Type: 
  Country: None (occurrence: None)
  Receive Date: 20111215
  Receipt Date: 20110331
  Transmission Date: 20120403
  Serious: Yes (Disabling, Other)
  Sender: FDA-Public Use
  Company Number: PHHY2011US26016

PATIENT
  Sex: Male

DRUGS (4)
  1. GLEEVEC [Suspect]
     Indication: CHRONIC MYELOID LEUKAEMIA
     Dosage: 400 MG, QD
     Route: 048
     Dates: start: 20010426
  2. TOPROL-XL [Concomitant]
     Dosage: 75 MG, QD
     Dates: start: 20040101
  3. ASPIRIN [Concomitant]
     Dosage: 81 MG, QD
     Route: 048
  4. INTERFERON [Concomitant]
     Dosage: UNK
     Route: 058
     Dates: start: 20010121, end: 20010301

REACTIONS (37)
  - PSYCHOMOTOR RETARDATION [None]
  - GENERAL PHYSICAL HEALTH DETERIORATION [None]
  - RETROPERITONEAL LYMPHADENOPATHY [None]
  - BACK PAIN [None]
  - HEPATIC FUNCTION ABNORMAL [None]
  - WEIGHT INCREASED [None]
  - DEPRESSION [None]
  - MYOPATHY [None]
  - HYPERLIPIDAEMIA [None]
  - HYPERTENSION [None]
  - ANHEDONIA [None]
  - DYSARTHRIA [None]
  - CAROTID ARTERY DISEASE [None]
  - HEPATOMEGALY [None]
  - AMYOTROPHIC LATERAL SCLEROSIS [None]
  - NEUROLOGICAL DECOMPENSATION [None]
  - LOWER MOTOR NEURONE LESION [None]
  - ANXIETY [None]
  - SPLENIC ARTERY ANEURYSM [None]
  - COUGH [None]
  - RENAL FAILURE CHRONIC [None]
  - EXTRAOCULAR MUSCLE DISORDER [None]
  - NEPHROGENIC ANAEMIA [None]
  - POLLAKIURIA [None]
  - DEMENTIA [None]
  - COGNITIVE DISORDER [None]
  - TREMOR [None]
  - RENAL DISORDER [None]
  - SLEEP APNOEA SYNDROME [None]
  - CEREBRAL ATROPHY [None]
  - IRON DEFICIENCY ANAEMIA [None]
  - NEUROPATHY PERIPHERAL [None]
  - HEAD INJURY [None]
  - UPPER RESPIRATORY TRACT INFECTION [None]
  - DYSPNOEA [None]
  - DECREASED APPETITE [None]
  - NOCTURIA [None]
